FAERS Safety Report 4436863-3 (Version None)
Quarter: 2004Q3

REPORT INFORMATION
  Report Type: 
  Country: None (occurrence: None)
  Receive Date: 20040726
  Receipt Date: 20040322
  Transmission Date: 20050211
  Serious: No
  Sender: FDA-Public Use
  Company Number: USA040362800

PATIENT
  Age: 55 Year
  Sex: Female

DRUGS (7)
  1. FORTEO [Suspect]
     Indication: OSTEOPOROSIS
     Dates: start: 20040201
  2. SYNTHROID [Concomitant]
  3. ESTRACE [Concomitant]
  4. METOPROLOL [Concomitant]
  5. SPORANOX [Concomitant]
  6. CITRACAL(CALCIUM CITRATE) [Concomitant]
  7. DHEA [Concomitant]

REACTIONS (7)
  - DIZZINESS [None]
  - HOT FLUSH [None]
  - INFLUENZA [None]
  - INJECTION SITE HAEMORRHAGE [None]
  - INJECTION SITE URTICARIA [None]
  - NAUSEA [None]
  - PALPITATIONS [None]
